FAERS Safety Report 22991654 (Version 3)
Quarter: 2023Q4

REPORT INFORMATION
  Report Type: Report from Study
  Country: US (occurrence: US)
  Receive Date: 20230927
  Receipt Date: 20231221
  Transmission Date: 20240110
  Serious: Yes (Other)
  Sender: FDA-Public Use
  Company Number: US-ABBVIE-4730675

PATIENT
  Sex: Female

DRUGS (5)
  1. IMBRUVICA [Suspect]
     Active Substance: IBRUTINIB
     Indication: Mantle cell lymphoma
     Dosage: LAST ADMIN DATE: 2023?FORM STRENGTH: 140 MG
     Route: 048
     Dates: start: 20231108
  2. IMBRUVICA [Suspect]
     Active Substance: IBRUTINIB
     Indication: Mantle cell lymphoma
     Dosage: STRENGTH 140 MILLIGRAMS
     Route: 048
     Dates: start: 202301, end: 202301
  3. IMBRUVICA [Suspect]
     Active Substance: IBRUTINIB
     Indication: Mantle cell lymphoma
     Route: 048
     Dates: start: 20230126, end: 20231108
  4. ELIQUIS [Suspect]
     Active Substance: APIXABAN
     Indication: Product used for unknown indication
     Route: 065
     Dates: end: 2023
  5. ASPIRIN [Concomitant]
     Active Substance: ASPIRIN
     Indication: Product used for unknown indication

REACTIONS (14)
  - Haemorrhage [Unknown]
  - Wound dehiscence [Unknown]
  - Urticaria [Unknown]
  - Mantle cell lymphoma [Unknown]
  - Fungal infection [Unknown]
  - Cardiac failure congestive [Unknown]
  - Contusion [Unknown]
  - Wound haemorrhage [Unknown]
  - Skin lesion [Unknown]
  - Overweight [Unknown]
  - Memory impairment [Unknown]
  - Gastrointestinal disorder [Unknown]
  - Decreased appetite [Unknown]
  - Heart rate irregular [Unknown]

NARRATIVE: CASE EVENT DATE: 20230101
